FAERS Safety Report 20818374 (Version 1)
Quarter: 2022Q2

REPORT INFORMATION
  Report Type: Spontaneous
  Country: US (occurrence: US)
  Receive Date: 20220512
  Receipt Date: 20220512
  Transmission Date: 20220721
  Serious: Yes (Other)
  Sender: FDA-Public Use
  Company Number: US-Axellia-004335

PATIENT

DRUGS (4)
  1. VANCOMYCIN [Suspect]
     Active Substance: VANCOMYCIN
     Indication: Product used for unknown indication
     Route: 042
  2. ABILIFY [Suspect]
     Active Substance: ARIPIPRAZOLE
     Indication: Product used for unknown indication
  3. LYRICA [Suspect]
     Active Substance: PREGABALIN
     Indication: Product used for unknown indication
  4. GABAPENTIN [Suspect]
     Active Substance: GABAPENTIN
     Indication: Product used for unknown indication

REACTIONS (4)
  - Suicidal ideation [Unknown]
  - Psychotic disorder [Unknown]
  - Cyclic vomiting syndrome [Unknown]
  - Flushing [Unknown]
